FAERS Safety Report 17739926 (Version 1)
Quarter: 2020Q2

REPORT INFORMATION
  Report Type: Other
  Country: US (occurrence: US)
  Receive Date: 20200504
  Receipt Date: 20200504
  Transmission Date: 20200714
  Serious: Yes (Death, Other)
  Sender: FDA-Public Use
  Company Number: US-USV-000096

PATIENT
  Age: 61 Year
  Sex: Male

DRUGS (6)
  1. EPTIFIBATIDE. [Suspect]
     Active Substance: EPTIFIBATIDE
     Indication: STENT PLACEMENT
     Dosage: INTRAVENOUS EPTIFIBATIDE INFUSION FOR 24?HOURS.
     Route: 042
  2. TISSUE PLASMINOGEN ACTIVATOR, RECOMBINANT [Suspect]
     Active Substance: ALTEPLASE
     Indication: INTRAOPERATIVE CARE
     Route: 013
  3. TISSUE PLASMINOGEN ACTIVATOR, RECOMBINANT [Suspect]
     Active Substance: ALTEPLASE
     Indication: STENT PLACEMENT
     Route: 013
  4. EPTIFIBATIDE. [Suspect]
     Active Substance: EPTIFIBATIDE
     Indication: INTRAOPERATIVE CARE
     Dosage: INTRAVENOUS EPTIFIBATIDE INFUSION FOR 24?HOURS.
     Route: 042
  5. EPTIFIBATIDE. [Suspect]
     Active Substance: EPTIFIBATIDE
     Indication: ANTIPLATELET THERAPY
     Dosage: INTRAVENOUS EPTIFIBATIDE INFUSION FOR 24?HOURS.
     Route: 042
  6. TISSUE PLASMINOGEN ACTIVATOR, RECOMBINANT [Suspect]
     Active Substance: ALTEPLASE
     Indication: ANTIPLATELET THERAPY
     Route: 013

REACTIONS (1)
  - Haemorrhagic cerebral infarction [Fatal]
